FAERS Safety Report 6742315-8 (Version None)
Quarter: 2010Q2

REPORT INFORMATION
  Report Type: 
  Country: None (occurrence: None)
  Receive Date: 20100526
  Receipt Date: 20100514
  Transmission Date: 20101027
  Serious: Yes (Other)
  Sender: FDA-Public Use
  Company Number: US-GENZYME-CLOF-1000967

PATIENT

DRUGS (1)
  1. CLOLAR [Suspect]
     Indication: ACUTE LEUKAEMIA
     Dosage: UNK UNK, UNK
     Route: 042
     Dates: start: 20100101, end: 20100101

REACTIONS (3)
  - BLOOD BILIRUBIN INCREASED [None]
  - LIVER DISORDER [None]
  - RENAL IMPAIRMENT [None]
